FAERS Safety Report 22806666 (Version 2)
Quarter: 2023Q4

REPORT INFORMATION
  Report Type: Spontaneous
  Country: US (occurrence: US)
  Receive Date: 20230810
  Receipt Date: 20231227
  Transmission Date: 20240110
  Serious: No
  Sender: FDA-Public Use
  Company Number: US-BRISTOL-MYERS SQUIBB COMPANY-2023-110506

PATIENT
  Age: 63 Year
  Sex: Male

DRUGS (2)
  1. THALOMID [Suspect]
     Active Substance: THALIDOMIDE
     Indication: Subacute cutaneous lupus erythematosus
     Dosage: TAKES 1 CAPSULE MONDAY, WEDNESDAY AND FRIDAY?FREQ: 28
  2. THALOMID [Suspect]
     Active Substance: THALIDOMIDE
     Dates: start: 20150111

REACTIONS (2)
  - Cardiac disorder [Unknown]
  - Off label use [Unknown]
